FAERS Safety Report 7376360-9 (Version None)
Quarter: 2011Q1

REPORT INFORMATION
  Report Type: 
  Country: None (occurrence: None)
  Receive Date: 20110325
  Receipt Date: 20101201
  Transmission Date: 20110831
  Serious: Yes (Other)
  Sender: FDA-Public Use
  Company Number: FR-AMGEN-FRASP2010002672

PATIENT
  Age: 82 Year
  Sex: Female
  Weight: 75 kg

DRUGS (2)
  1. MOPRAL                             /00661201/ [Concomitant]
     Dosage: 40 UNK, QD
     Route: 048
     Dates: start: 20100601
  2. ARANESP [Suspect]
     Indication: MYELODYSPLASTIC SYNDROME
     Dosage: 150 A?G, QWK
     Route: 058
     Dates: start: 20100920, end: 20101027

REACTIONS (4)
  - HAEMOLYSIS [None]
  - THERAPEUTIC RESPONSE DECREASED [None]
  - FEELING ABNORMAL [None]
  - HAEMOGLOBIN DECREASED [None]
